FAERS Safety Report 8393096 (Version 4)
Quarter: 2013Q2

REPORT INFORMATION
  Report Type: Report from Study
  Country: JP (occurrence: JP)
  Receive Date: 20120207
  Receipt Date: 20130531
  Transmission Date: 20140414
  Serious: Yes (Hospitalization)
  Sender: FDA-Public Use
  Company Number: JP-GENZYME-THYM-1003101

PATIENT
  Age: 0 Year
  Sex: Male
  Weight: 9 kg

DRUGS (62)
  1. THYMOGLOBULINE [Suspect]
     Indication: BONE MARROW CONDITIONING REGIMEN
     Dosage: 22.5 MG, QD
     Route: 042
     Dates: start: 20100130, end: 20100202
  2. FLUDARA [Suspect]
     Indication: BONE MARROW CONDITIONING REGIMEN
     Dosage: 7.5 MG, QD
     Route: 042
     Dates: start: 20100127, end: 20100130
  3. FLUDARA [Suspect]
     Indication: CHRONIC GRANULOMATOUS DISEASE
  4. PROGRAF [Suspect]
     Indication: PROPHYLAXIS AGAINST GRAFT VERSUS HOST DISEASE
  5. MELPHALAN [Concomitant]
     Indication: BONE MARROW CONDITIONING REGIMEN
     Dosage: 40 MG/KG, QD
     Route: 065
  6. AMPHOTERICIN B [Concomitant]
     Indication: ANTIFUNGAL PROPHYLAXIS
     Dosage: UNK
     Route: 065
     Dates: start: 20100119, end: 20100615
  7. AMPHOTERICIN B [Concomitant]
     Indication: ANTIFUNGAL PROPHYLAXIS
     Dosage: UNK
     Route: 065
     Dates: start: 20100321, end: 20100321
  8. METHOTREXATE [Concomitant]
     Indication: PROPHYLAXIS AGAINST GRAFT VERSUS HOST DISEASE
     Dosage: UNK
     Route: 065
     Dates: start: 20100205, end: 20100205
  9. METHOTREXATE [Concomitant]
     Dosage: UNK
     Route: 065
     Dates: start: 20100207, end: 20100207
  10. METHOTREXATE [Concomitant]
     Dosage: UNK
     Route: 065
     Dates: start: 20100210, end: 20100210
  11. VORICONAZOLE [Concomitant]
     Indication: ANTIFUNGAL PROPHYLAXIS
     Dosage: UNK
     Route: 065
     Dates: start: 20091028
  12. SULFAMETHOPRIM [Concomitant]
     Indication: ANTIFUNGAL PROPHYLAXIS
     Dosage: UNK
     Route: 065
     Dates: start: 20091001
  13. URSODESOXYCHOLIC ACID [Concomitant]
     Indication: PROPHYLAXIS
     Dosage: UNK
     Route: 065
     Dates: start: 20100119, end: 20100330
  14. FENOTEROL HYDROBROMIDE [Concomitant]
     Indication: INFECTION PROPHYLAXIS
     Dosage: UNK
     Route: 065
     Dates: start: 20100119, end: 20100303
  15. OSELTAMIVIR PHOSPHATE [Concomitant]
     Indication: ANTIVIRAL PROPHYLAXIS
     Dosage: UNK
     Route: 065
     Dates: start: 20100217, end: 20100226
  16. AMLODIPINE BESILATE [Concomitant]
     Indication: BRONCHOPULMONARY ASPERGILLOSIS
     Dosage: UNK
     Route: 065
     Dates: start: 20100222, end: 20100608
  17. AMLODIPINE BESILATE [Concomitant]
     Indication: HYPERTENSION
  18. CLOSTRIDIUM BUTYRICUM [Concomitant]
     Indication: GASTROENTERITIS
     Dosage: UNK
     Route: 065
     Dates: start: 20100303, end: 20100627
  19. SODIUM CROMOGLICATE [Concomitant]
     Indication: PROPHYLAXIS
     Dosage: UNK
     Route: 065
     Dates: start: 20100615, end: 20100706
  20. PRANLUKAST [Concomitant]
     Indication: PROPHYLAXIS
     Dosage: UNK
     Route: 065
     Dates: start: 20100717
  21. MAGNESIUM OXIDE [Concomitant]
     Indication: CONSTIPATION PROPHYLAXIS
     Dosage: UNK
     Route: 065
     Dates: start: 20100628, end: 20100706
  22. CLARITHROMYCIN [Concomitant]
     Indication: PROPHYLAXIS
     Dosage: UNK
     Route: 065
     Dates: start: 20100709
  23. CARBOCISTEINE [Concomitant]
     Indication: PROPHYLAXIS
     Dosage: UNK
     Route: 065
     Dates: start: 20100717
  24. CEFDITOREN PIVOXIL [Concomitant]
     Indication: SINUSITIS
     Dosage: UNK
     Route: 065
     Dates: start: 20100720, end: 20100725
  25. MINOCYCLINE HYDROCHLORIDE [Concomitant]
     Indication: PROPHYLAXIS
     Dosage: UNK
     Route: 065
     Dates: start: 20100729
  26. MINOCYCLINE HYDROCHLORIDE [Concomitant]
     Indication: SEPSIS
     Dosage: UNK
     Dates: start: 20100731
  27. PIPERACILLIN SODIUM [Concomitant]
     Indication: PROPHYLAXIS
     Dosage: UNK
     Route: 065
     Dates: start: 20100120, end: 20100208
  28. PIPERACILLIN SODIUM [Concomitant]
     Dosage: UNK
     Route: 065
     Dates: start: 20100210, end: 20100216
  29. PIPERACILLIN SODIUM [Concomitant]
     Dosage: UNK
     Route: 065
     Dates: start: 20100319, end: 20100322
  30. PIPERACILLIN SODIUM [Concomitant]
     Dosage: UNK
     Route: 065
     Dates: start: 20100521, end: 20100524
  31. NORMAL HUMAN IMMUNOGLOBULIN [Concomitant]
     Indication: PROPHYLAXIS
     Dosage: UNK
     Route: 065
     Dates: start: 20100205, end: 20100205
  32. NORMAL HUMAN IMMUNOGLOBULIN [Concomitant]
     Dosage: UNK
     Route: 065
     Dates: start: 20100212, end: 20100212
  33. NORMAL HUMAN IMMUNOGLOBULIN [Concomitant]
     Dosage: UNK
     Route: 065
     Dates: start: 20100219, end: 20100219
  34. NORMAL HUMAN IMMUNOGLOBULIN [Concomitant]
     Dosage: UNK
     Route: 065
     Dates: start: 20100226, end: 20100226
  35. NORMAL HUMAN IMMUNOGLOBULIN [Concomitant]
     Dosage: UNK
     Route: 065
     Dates: start: 20100324, end: 20100324
  36. NORMAL HUMAN IMMUNOGLOBULIN [Concomitant]
     Dosage: UNK
     Route: 065
     Dates: start: 20100403, end: 20100403
  37. NORMAL HUMAN IMMUNOGLOBULIN [Concomitant]
     Dosage: UNK
     Route: 065
     Dates: start: 20100422, end: 20100422
  38. NORMAL HUMAN IMMUNOGLOBULIN [Concomitant]
  39. NORMAL HUMAN IMMUNOGLOBULIN [Concomitant]
     Dosage: UNK
     Route: 065
     Dates: start: 20100515, end: 20100515
  40. NORMAL HUMAN IMMUNOGLOBULIN [Concomitant]
     Dosage: UNK
     Route: 065
     Dates: start: 20100729, end: 20100729
  41. ACICLOVIR [Concomitant]
     Indication: ANTIVIRAL PROPHYLAXIS
     Dosage: UNK
     Route: 065
     Dates: start: 20100201, end: 20100311
  42. MICAFUNGIN SODIUM [Concomitant]
     Indication: ANTIFUNGAL PROPHYLAXIS
     Dosage: UNK
     Route: 065
     Dates: start: 20100208, end: 20100323
  43. MICAFUNGIN SODIUM [Concomitant]
     Indication: FUNGAL INFECTION
     Dosage: UNK
     Route: 065
     Dates: start: 20100729
  44. FILGRASTIM [Concomitant]
     Indication: LEUKOPENIA
     Dosage: UNK
     Route: 065
     Dates: start: 20100209, end: 20100301
  45. ANTITHROMBIN III HUMAN [Concomitant]
     Indication: PROPHYLAXIS
     Dosage: UNK
     Route: 065
     Dates: start: 20100211, end: 20100211
  46. ANTITHROMBIN III HUMAN [Concomitant]
     Dosage: UNK
     Route: 065
     Dates: start: 20100213, end: 20100213
  47. ANTITHROMBIN III HUMAN [Concomitant]
     Dosage: UNK
     Route: 065
     Dates: start: 20100216, end: 20100216
  48. ANTITHROMBIN III HUMAN [Concomitant]
     Dosage: UNK
     Route: 065
     Dates: start: 20100221, end: 20100221
  49. ANTITHROMBIN III HUMAN [Concomitant]
     Dosage: UNK
     Route: 065
     Dates: start: 20100325, end: 20100325
  50. ANTITHROMBIN III HUMAN [Concomitant]
     Dosage: UNK
     Route: 065
     Dates: start: 20100519, end: 20100519
  51. CEFOZOPRAN HYDROCHLORIDE [Concomitant]
     Indication: PROPHYLAXIS
     Dosage: UNK
     Route: 065
     Dates: start: 20100216, end: 20100301
  52. CEFOZOPRAN HYDROCHLORIDE [Concomitant]
     Dosage: UNK
     Route: 065
     Dates: start: 20100322, end: 20100323
  53. CEFOZOPRAN HYDROCHLORIDE [Concomitant]
     Dosage: UNK
     Route: 065
     Dates: start: 20100406, end: 20100406
  54. CEFOZOPRAN HYDROCHLORIDE [Concomitant]
     Dosage: UNK
     Route: 065
     Dates: start: 20100729
  55. SOYBEAN OIL [Concomitant]
     Indication: PROPHYLAXIS
     Dosage: UNK
     Route: 065
     Dates: start: 20100318, end: 20100325
  56. SOYBEAN OIL [Concomitant]
     Dosage: UNK
     Route: 065
     Dates: start: 20100418, end: 20100514
  57. CICLOSPORIN [Concomitant]
     Indication: PROPHYLAXIS AGAINST GRAFT VERSUS HOST DISEASE
     Dosage: UNK
     Route: 065
     Dates: start: 20100324, end: 20100418
  58. METHYLDOPA [Concomitant]
     Indication: CARDIAC FAILURE
     Dosage: UNK
     Route: 065
     Dates: start: 20100418, end: 20100512
  59. PREDNISOLONE [Concomitant]
     Indication: PROPHYLAXIS AGAINST GRAFT VERSUS HOST DISEASE
     Dosage: UNK
     Route: 065
     Dates: start: 20100513, end: 20100514
  60. CLINDAMYCIN PHOSPHATE [Concomitant]
     Indication: PROPHYLAXIS
     Dosage: UNK
     Route: 065
     Dates: start: 20100514, end: 20100515
  61. TACROLIMUS [Concomitant]
     Indication: PROPHYLAXIS AGAINST GRAFT VERSUS HOST DISEASE
     Dosage: UNK
     Route: 065
     Dates: start: 20100203, end: 20100324
  62. TOTAL BODY IRRADIATION [Concomitant]
     Indication: BONE MARROW CONDITIONING REGIMEN
     Dosage: UNK
     Route: 065

REACTIONS (3)
  - Bronchopulmonary aspergillosis [Recovered/Resolved]
  - Thrombotic microangiopathy [Recovered/Resolved]
  - Staphylococcal sepsis [Recovered/Resolved]
